FAERS Safety Report 4371252-1 (Version None)
Quarter: 2004Q2

REPORT INFORMATION
  Report Type: 
  Country: None (occurrence: None)
  Receive Date: 20040603
  Receipt Date: 20040521
  Transmission Date: 20050107
  Serious: Yes (Other)
  Sender: FDA-Public Use
  Company Number: 200312850BCC

PATIENT
  Age: 20 Year
  Sex: Female
  Weight: 72.5755 kg

DRUGS (3)
  1. LIDOCAINE [Suspect]
     Dates: start: 20030811, end: 20030812
  2. LEXAPRO [Concomitant]
  3. NAPROXEN [Concomitant]

REACTIONS (7)
  - ABNORMAL SENSATION IN EYE [None]
  - DIZZINESS [None]
  - EYE IRRITATION [None]
  - HEADACHE [None]
  - LACRIMATION INCREASED [None]
  - MEDICATION ERROR [None]
  - PHOTOPHOBIA [None]
